FAERS Safety Report 9163798 (Version 2)
Quarter: 2013Q2

REPORT INFORMATION
  Report Type: Spontaneous
  Country: US (occurrence: US)
  Receive Date: 20130314
  Receipt Date: 20130409
  Transmission Date: 20140414
  Serious: Yes (Hospitalization)
  Sender: FDA-Public Use
  Company Number: US-GILEAD-2013-0071712

PATIENT
  Age: 82 Year
  Sex: Female

DRUGS (21)
  1. LETAIRIS [Suspect]
     Indication: PULMONARY HYPERTENSION
     Dosage: 5 MG, UNK
     Dates: start: 20120601
  2. CARDIZEM                           /00489701/ [Concomitant]
     Dosage: UNK
  3. METOPROLOL SUCCINATE [Concomitant]
     Dosage: UNK
  4. COUMADIN                           /00014802/ [Concomitant]
     Dosage: UNK
  5. SPIRONOLACTONE [Concomitant]
     Dosage: UNK
  6. BUMEX [Concomitant]
     Dosage: UNK
  7. TRAVOPROST [Concomitant]
  8. OXYGEN [Concomitant]
     Dosage: UNK
  9. POLYETHYLENE GLYCOL [Concomitant]
  10. MULTIVITAMIN                       /00097801/ [Concomitant]
  11. VITAMIN E                          /00110501/ [Concomitant]
  12. ZOCOR [Concomitant]
  13. CALCIUM + VITAMIN D [Concomitant]
  14. AMITRIPTYLINE [Concomitant]
  15. INSULIN REGULAR HM [Concomitant]
  16. REQUIP [Concomitant]
  17. LEVEMIR [Concomitant]
  18. MAGNESIUM [Concomitant]
  19. POTASSIUM CHLORIDE [Concomitant]
  20. ZALEPLON [Concomitant]
  21. PRILOSEC                           /00661201/ [Concomitant]

REACTIONS (2)
  - Pneumonia bacterial [Unknown]
  - Cardiac failure congestive [Unknown]
